FAERS Safety Report 10983122 (Version 1)
Quarter: 2015Q2

REPORT INFORMATION
  Report Type: Spontaneous
  Country: US (occurrence: US)
  Receive Date: 20150403
  Receipt Date: 20150403
  Transmission Date: 20150821
  Serious: No
  Sender: FDA-Public Use
  Company Number: US-PFIZER INC-2015109707

PATIENT
  Age: 66 Year
  Sex: Female

DRUGS (1)
  1. SUTENT [Suspect]
     Active Substance: SUNITINIB MALATE
     Indication: BONE CANCER
     Dosage: 50 MG, DAILY
     Route: 048
     Dates: start: 20150317

REACTIONS (2)
  - Pain in jaw [Unknown]
  - Product use issue [Unknown]

NARRATIVE: CASE EVENT DATE: 20150321
